FAERS Safety Report 26070055 (Version 1)
Quarter: 2025Q4

REPORT INFORMATION
  Report Type: Spontaneous
  Country: PR (occurrence: None)
  Receive Date: 20251119
  Receipt Date: 20251119
  Transmission Date: 20260118
  Serious: Yes (Other)
  Sender: FDA-CTU
  Company Number: None

PATIENT
  Age: 42 Year
  Sex: Female
  Weight: 104.3 kg

DRUGS (10)
  1. CORTICOTROPIN [Suspect]
     Active Substance: CORTICOTROPIN
     Indication: Multiple sclerosis
     Dosage: FREQUENCY : DAILY;?
     Route: 058
  2. Synthroid Oral Tablet 88 MCG [Concomitant]
  3. predniSONE Oral Tablet 20MG [Concomitant]
  4. Neurontin Oral Tablet 800 MG [Concomitant]
  5. Wellbutrin SR Oral Tablet Extended [Concomitant]
  6. Effexor XR Oral Capsule Extended Re [Concomitant]
  7. Cataflam Oral Tablet 50 MG [Concomitant]
  8. Ocrevus Intravenous Solution 300 Mg [Concomitant]
  9. carBAMazepine Oral Tablet 200 MG [Concomitant]
  10. tiZANidine HCl Oral Capsule 4 MG [Concomitant]

REACTIONS (7)
  - Urinary tract infection [None]
  - Pain in extremity [None]
  - Paraesthesia [None]
  - Fatigue [None]
  - Gait disturbance [None]
  - Temperature intolerance [None]
  - Therapy interrupted [None]

NARRATIVE: CASE EVENT DATE: 20251119
